FAERS Safety Report 19641887 (Version 1)
Quarter: 2021Q3

REPORT INFORMATION
  Report Type: Spontaneous
  Country: DE (occurrence: DE)
  Receive Date: 20210730
  Receipt Date: 20210730
  Transmission Date: 20211014
  Serious: Yes (Other)
  Sender: FDA-Public Use
  Company Number: NVSC2021DE165117

PATIENT
  Age: 35 Year
  Sex: Male

DRUGS (2)
  1. ELONTRIL [Suspect]
     Active Substance: BUPROPION HYDROCHLORIDE
     Indication: ATTENTION DEFICIT HYPERACTIVITY DISORDER
     Dosage: 150 MG
     Route: 065
  2. BUPROPION. [Suspect]
     Active Substance: BUPROPION
     Indication: ATTENTION DEFICIT HYPERACTIVITY DISORDER
     Dosage: 300 MG
     Route: 065

REACTIONS (4)
  - Psychotic disorder [Unknown]
  - Drug effective for unapproved indication [Unknown]
  - Off label use [Unknown]
  - Transient ischaemic attack [Unknown]
